FAERS Safety Report 11544657 (Version 1)
Quarter: 2015Q3

REPORT INFORMATION
  Report Type: Spontaneous
  Country: US (occurrence: US)
  Receive Date: 20150924
  Receipt Date: 20150924
  Transmission Date: 20151125
  Serious: No
  Sender: FDA-Public Use
  Company Number: US-FRI-1000078125

PATIENT
  Sex: Female

DRUGS (3)
  1. FETZIMA [Suspect]
     Active Substance: LEVOMILNACIPRAN HYDROCHLORIDE
     Dosage: 80MG
     Route: 048
  2. FETZIMA [Suspect]
     Active Substance: LEVOMILNACIPRAN HYDROCHLORIDE
     Dosage: 40MG
     Route: 048
  3. FETZIMA [Suspect]
     Active Substance: LEVOMILNACIPRAN HYDROCHLORIDE
     Indication: DEPRESSION
     Dosage: 20MG
     Route: 048
     Dates: start: 20150523

REACTIONS (3)
  - Vomiting [Not Recovered/Not Resolved]
  - Hyperhidrosis [Not Recovered/Not Resolved]
  - Nausea [Not Recovered/Not Resolved]
